FAERS Safety Report 5216020-3 (Version None)
Quarter: 2006Q4

REPORT INFORMATION
  Report Type: 
  Country: None (occurrence: None)
  Receive Date: 20061122
  Receipt Date: 20060322
  Transmission Date: 20070319
  Serious: Yes (Hospitalization)
  Sender: FDA-Public Use
  Company Number: 2006040300

PATIENT
  Sex: Female
  Weight: 81.6475 kg

DRUGS (1)
  1. LIPITOR [Suspect]
     Indication: ILL-DEFINED DISORDER
     Dosage: (DAILY INTERVAL: EVERY DAY)
     Dates: end: 20050101

REACTIONS (9)
  - ABDOMINAL PAIN UPPER [None]
  - ANXIETY [None]
  - BODY HEIGHT DECREASED [None]
  - BONE PAIN [None]
  - COUGH [None]
  - DEPRESSION [None]
  - HYPERTENSION [None]
  - ILL-DEFINED DISORDER [None]
  - PAIN [None]
